FAERS Safety Report 7238769-3 (Version None)
Quarter: 2011Q1

REPORT INFORMATION
  Report Type: 
  Country: None (occurrence: None)
  Receive Date: 20110121
  Receipt Date: 20110117
  Transmission Date: 20110831
  Serious: Yes (Life-Threatening, Hospitalization, Other)
  Sender: FDA-Public Use
  Company Number: DE-PFIZER INC-2011011902

PATIENT
  Age: 63 Year
  Sex: Female

DRUGS (9)
  1. CORDAREX [Suspect]
     Dosage: UNK, DAILY
     Route: 042
     Dates: start: 20101001, end: 20101007
  2. PANTOZOL [Concomitant]
  3. AMLODIPINE [Concomitant]
     Dosage: UNK
     Dates: end: 20100930
  4. ASPIRIN [Concomitant]
  5. CORDAREX [Suspect]
     Dosage: UNK, DAILY
     Dates: start: 20101010, end: 20101011
  6. SIMVASTATIN [Concomitant]
  7. VALSARTAN [Concomitant]
     Dosage: UNK
     Dates: end: 20100930
  8. PIPERACILLIN AND TAZOBACTAM [Suspect]
     Dosage: 4.5 G, UNK
     Route: 042
     Dates: start: 20101001, end: 20101007
  9. CIPROFLOXACIN [Suspect]
     Dosage: 400 MG, UNK
     Route: 042
     Dates: start: 20101010, end: 20101016

REACTIONS (2)
  - LONG QT SYNDROME [None]
  - TORSADE DE POINTES [None]
